FAERS Safety Report 6969038-4 (Version None)
Quarter: 2010Q3

REPORT INFORMATION
  Report Type: 
  Country: None (occurrence: None)
  Receive Date: 20100903
  Receipt Date: 20100903
  Transmission Date: 20110219
  Serious: Yes (Life-Threatening, Hospitalization)
  Sender: FDA-Public Use
  Company Number: None

PATIENT
  Sex: Male
  Weight: 104.3273 kg

DRUGS (2)
  1. TIKOSYN [Suspect]
     Indication: ATRIAL FIBRILLATION
     Dosage: 0.5 MG EVERY 12 HOURS PO
     Route: 048
     Dates: start: 20100730, end: 20100822
  2. TIKOSYN [Suspect]
     Indication: ATRIAL FLUTTER
     Dosage: 0.5 MG EVERY 12 HOURS PO
     Route: 048
     Dates: start: 20100730, end: 20100822

REACTIONS (2)
  - TORSADE DE POINTES [None]
  - VOMITING [None]
